FAERS Safety Report 6585470-5 (Version None)
Quarter: 2010Q1

REPORT INFORMATION
  Report Type: 
  Country: None (occurrence: None)
  Receive Date: 20100201
  Receipt Date: 20091124
  Transmission Date: 20100710
  Serious: Yes (Hospitalization, Other)
  Sender: FDA-Public Use
  Company Number: 2009BH018177

PATIENT
  Age: 84 Year
  Sex: Female

DRUGS (1)
  1. DIANEAL PD-2 W/ DEXTROSE 1.5% [Suspect]
     Indication: PERITONEAL DIALYSIS
     Dosage: 2 L;4X A DAY;IP
     Route: 033
     Dates: start: 20090309, end: 20091123

REACTIONS (2)
  - ABSCESS [None]
  - PERITONITIS BACTERIAL [None]
